FAERS Safety Report 20867460 (Version 1)
Quarter: 2022Q2

REPORT INFORMATION
  Report Type: Spontaneous
  Country: US (occurrence: None)
  Receive Date: 20220523
  Receipt Date: 20220523
  Transmission Date: 20220721
  Serious: Yes (Other)
  Sender: FDA-Public Use
  Company Number: None

PATIENT
  Age: 31 Year
  Sex: Female
  Weight: 113.4 kg

DRUGS (5)
  1. PAXLOVID [Suspect]
     Active Substance: NIRMATRELVIR\RITONAVIR
     Indication: COVID-19
     Dosage: OTHER QUANTITY : 3 TABLET(S);?FREQUENCY : TWICE A DAY;?
     Route: 048
     Dates: start: 20220523, end: 20220523
  2. CYCLOBENZAPRINE [Concomitant]
  3. ALBUTEROL SULFATE [Concomitant]
  4. MINASTRIN 24 FE [Concomitant]
     Active Substance: ETHINYL ESTRADIOL\NORETHINDRONE ACETATE
  5. Gummy multivitamin [Concomitant]

REACTIONS (10)
  - Lethargy [None]
  - Fatigue [None]
  - Nausea [None]
  - Vomiting [None]
  - Retching [None]
  - Diarrhoea [None]
  - Anorectal discomfort [None]
  - COVID-19 [None]
  - Anal haemorrhage [None]
  - Dehydration [None]

NARRATIVE: CASE EVENT DATE: 20220523
